FAERS Safety Report 10741500 (Version 1)
Quarter: 2015Q1

REPORT INFORMATION
  Report Type: Spontaneous
  Country: CN (occurrence: CN)
  Receive Date: 20150127
  Receipt Date: 20150127
  Transmission Date: 20150721
  Serious: Yes (Hospitalization)
  Sender: FDA-Public Use
  Company Number: CN-PFIZER INC-2015028236

PATIENT
  Age: 77 Year
  Sex: Male

DRUGS (2)
  1. DIGOXIN. [Suspect]
     Active Substance: DIGOXIN
     Indication: VENTRICULAR EXTRASYSTOLES
     Dosage: UNK
     Route: 065
     Dates: end: 20140818
  2. CORDARONE [Suspect]
     Active Substance: AMIODARONE HYDROCHLORIDE
     Indication: SUPRAVENTRICULAR TACHYCARDIA
     Dosage: 0.2 G, 1X/DAY
     Route: 048
     Dates: start: 20140217, end: 20140818

REACTIONS (5)
  - Toxicity to various agents [Recovering/Resolving]
  - Atrioventricular block [Recovering/Resolving]
  - Cardiac failure [Unknown]
  - Bradycardia [Recovering/Resolving]
  - Cardioactive drug level above therapeutic [Recovering/Resolving]

NARRATIVE: CASE EVENT DATE: 20140818
